FAERS Safety Report 5976127-X (Version None)
Quarter: 2008Q4

REPORT INFORMATION
  Report Type: 
  Country: None (occurrence: None)
  Receive Date: 20081202
  Receipt Date: 20080915
  Transmission Date: 20090506
  Serious: Yes (Other)
  Sender: FDA-Public Use
  Company Number: US-AMGEN-QUU276046

PATIENT
  Sex: Female
  Weight: 63.1 kg

DRUGS (16)
  1. ENBREL [Suspect]
     Indication: RHEUMATOID ARTHRITIS
     Route: 058
     Dates: start: 20080417
  2. METHOTREXATE [Concomitant]
     Route: 048
     Dates: start: 20070801
  3. FOSAMAX [Concomitant]
     Route: 048
  4. LEVOTHYROXINE SODIUM [Concomitant]
  5. FOLIC ACID [Concomitant]
     Route: 048
  6. CALCIUM [Concomitant]
     Route: 048
  7. VITAMIN D [Concomitant]
     Route: 048
  8. MULTI-VITAMINS [Concomitant]
     Route: 048
  9. AZELAIC ACID [Concomitant]
     Route: 061
  10. LOVAZA [Concomitant]
  11. PREMPRO [Concomitant]
     Route: 048
  12. AMBIEN [Concomitant]
     Route: 048
  13. CELEXA [Concomitant]
     Route: 048
  14. MIRALAX [Concomitant]
     Route: 048
  15. PREDNISONE TAB [Concomitant]
     Route: 048
  16. TUMS [Concomitant]

REACTIONS (5)
  - ANXIETY [None]
  - DEPRESSION [None]
  - DYSPEPSIA [None]
  - MOUTH ULCERATION [None]
  - SLEEP DISORDER [None]
